FAERS Safety Report 20383474 (Version 1)
Quarter: 2022Q1

REPORT INFORMATION
  Report Type: Report from Study
  Country: IL (occurrence: IL)
  Receive Date: 20220127
  Receipt Date: 20220127
  Transmission Date: 20220424
  Serious: Yes (Other)
  Sender: FDA-Public Use
  Company Number: IL-SHIRE-IL201932145AA

PATIENT
  Age: 7 Year
  Sex: Female

DRUGS (3)
  1. VELAGLUCERASE ALFA [Suspect]
     Active Substance: VELAGLUCERASE ALFA
     Indication: Gaucher^s disease
     Dosage: 1/2 VIALS (TOTAL OF 3 VIALS PER MONTH), 1X/2WKS (ALTERNATING ONCE EVERY TWO WEEKS)
     Route: 042
     Dates: start: 20181010
  2. VELAGLUCERASE ALFA [Suspect]
     Active Substance: VELAGLUCERASE ALFA
     Dosage: 1/2 VIALS (TOTAL OF 3 VIALS PER MONTH), 1X/2WKS (ALTERNATING ONCE EVERY TWO WEEKS)
     Route: 042
     Dates: start: 20181010
  3. VELAGLUCERASE ALFA [Suspect]
     Active Substance: VELAGLUCERASE ALFA
     Dosage: 3 DOSAGE FORM, 2/WEEK
     Route: 042
     Dates: start: 20181010

REACTIONS (2)
  - Pneumonia [Recovering/Resolving]
  - Coronavirus infection [Recovered/Resolved]

NARRATIVE: CASE EVENT DATE: 20190916
